FAERS Safety Report 6187633-X (Version None)
Quarter: 2009Q2

REPORT INFORMATION
  Report Type: 
  Country: None (occurrence: None)
  Receive Date: 20090511
  Receipt Date: 20090428
  Transmission Date: 20091009
  Serious: Yes (Death)
  Sender: FDA-Public Use
  Company Number: 2009AL002025

PATIENT
  Age: 71 Year
  Sex: Male
  Weight: 61.2356 kg

DRUGS (9)
  1. DIGOXIN [Suspect]
     Indication: CARDIAC FAILURE CHRONIC
     Dosage: 0.25MG, PO
     Route: 048
  2. ALLOPURINOL [Concomitant]
  3. COUMADIN [Concomitant]
  4. FISH OIL [Concomitant]
  5. FUROSEMIDE [Concomitant]
  6. METOPROLOL [Concomitant]
  7. GLIPIZIDE [Concomitant]
  8. PROPOXYPHONE [Concomitant]
  9. SIMVASTATIN [Concomitant]

REACTIONS (7)
  - ANHEDONIA [None]
  - ARRHYTHMIA [None]
  - ILL-DEFINED DISORDER [None]
  - MENTAL DISORDER [None]
  - MULTIPLE INJURIES [None]
  - PAIN [None]
  - THERAPEUTIC AGENT TOXICITY [None]
